FAERS Safety Report 9792000 (Version 1)
Quarter: 2014Q1

REPORT INFORMATION
  Report Type: Spontaneous
  Country: US (occurrence: US)
  Receive Date: 20140102
  Receipt Date: 20140102
  Transmission Date: 20141002
  Serious: Yes (Other)
  Sender: FDA-Public Use
  Company Number: US-UCBSA-107063

PATIENT
  Sex: 0

DRUGS (1)
  1. VIMPAT [Suspect]
     Dosage: UNKNOWN DOSE

REACTIONS (1)
  - Partial seizures [Unknown]
